FAERS Safety Report 4559725-X (Version None)
Quarter: 2005Q1

REPORT INFORMATION
  Report Type: 
  Country: None (occurrence: None)
  Receive Date: 20050114
  Receipt Date: 20040123
  Transmission Date: 20050727
  Serious: Yes (Other)
  Sender: FDA-Public Use
  Company Number: BDI-005775

PATIENT
  Age: 67 Year
  Sex: Female

DRUGS (2)
  1. PROHANCE [Suspect]
     Indication: NUCLEAR MAGNETIC RESONANCE IMAGING BRAIN
     Dosage: 10 ML ONCE IV
     Route: 042
     Dates: start: 20040122, end: 20040122
  2. PROHANCE [Suspect]
     Indication: TRANSIENT ISCHAEMIC ATTACK
     Dosage: 10 ML ONCE IV
     Route: 042
     Dates: start: 20040122, end: 20040122

REACTIONS (8)
  - DEPRESSED LEVEL OF CONSCIOUSNESS [None]
  - DYSPNOEA [None]
  - LETHARGY [None]
  - NASAL DISCOMFORT [None]
  - OTORRHOEA [None]
  - PRODUCTIVE COUGH [None]
  - SNEEZING [None]
  - UPPER RESPIRATORY TRACT CONGESTION [None]
